FAERS Safety Report 23941982 (Version 1)
Quarter: 2024Q2

REPORT INFORMATION
  Report Type: Spontaneous
  Country: US (occurrence: US)
  Receive Date: 20240605
  Receipt Date: 20240605
  Transmission Date: 20240716
  Serious: No
  Sender: FDA-Public Use
  Company Number: US-SA-SAC20240531000475

PATIENT
  Sex: Female

DRUGS (1)
  1. DUPIXENT [Suspect]
     Active Substance: DUPILUMAB
     Indication: Dermatitis atopic
     Dosage: 300 MG, QOW
     Route: 058

REACTIONS (7)
  - Injection site nodule [Unknown]
  - Skin burning sensation [Unknown]
  - Erythema [Unknown]
  - Pruritus [Unknown]
  - Rash [Unknown]
  - Injection site erythema [Unknown]
  - Injection site pruritus [Unknown]
